FAERS Safety Report 14467360 (Version 1)
Quarter: 2018Q1

REPORT INFORMATION
  Report Type: Spontaneous
  Country: CA (occurrence: CA)
  Receive Date: 20180131
  Receipt Date: 20180131
  Transmission Date: 20180509
  Serious: Yes (Hospitalization, Other)
  Sender: FDA-Public Use
  Company Number: CA-LUPIN PHARMACEUTICALS INC.-2018-00452

PATIENT
  Age: 19 Year
  Sex: Female

DRUGS (1)
  1. OXYCODONE AND ACETAMINOPHEN [Suspect]
     Active Substance: ACETAMINOPHEN\OXYCODONE HYDROCHLORIDE
     Indication: PRODUCT USED FOR UNKNOWN INDICATION
     Dosage: UNK (CRUSHED INTRANASAL PERCOCET FOR GREATER THAN 1 YEAR)
     Route: 045

REACTIONS (10)
  - Nasal septum perforation [Unknown]
  - Palatal disorder [Not Recovered/Not Resolved]
  - Velopharyngeal incompetence [Unknown]
  - Candida infection [Unknown]
  - Nasal mucosal erosion [Unknown]
  - Necrosis [Unknown]
  - Stenosis [Not Recovered/Not Resolved]
  - Intentional product misuse [Unknown]
  - Nasal obstruction [Unknown]
  - Nose deformity [Unknown]
